FAERS Safety Report 11930286 (Version 1)
Quarter: 2016Q1

REPORT INFORMATION
  Report Type: Spontaneous
  Country: US (occurrence: None)
  Receive Date: 20160120
  Receipt Date: 20160120
  Transmission Date: 20160526
  Serious: No
  Sender: FDA-Public Use
  Company Number: None

PATIENT
  Age: 83 Year
  Sex: Female

DRUGS (11)
  1. ACEBUTOLOL [Concomitant]
     Active Substance: ACEBUTOLOL
  2. OXYBUTYNIN [Concomitant]
     Active Substance: OXYBUTYNIN
  3. MEDROL [Concomitant]
     Active Substance: METHYLPREDNISOLONE
  4. IBRANCE [Suspect]
     Active Substance: PALBOCICLIB
     Indication: BREAST CANCER
     Dosage: 125 MG QD FOR 21DS
     Route: 048
     Dates: start: 20150623, end: 20160114
  5. FELODIPINE. [Concomitant]
     Active Substance: FELODIPINE
  6. LETROZOLE. [Concomitant]
     Active Substance: LETROZOLE
  7. LORAZEPAM. [Concomitant]
     Active Substance: LORAZEPAM
  8. SERTRALINE [Concomitant]
     Active Substance: SERTRALINE HYDROCHLORIDE
  9. SYNTHROID [Concomitant]
     Active Substance: LEVOTHYROXINE SODIUM
  10. CALCIUM CITRATE [Concomitant]
     Active Substance: CALCIUM CITRATE
  11. OXYCODONE AND ACETAMINOPHEN [Concomitant]
     Active Substance: ACETAMINOPHEN\OXYCODONE HYDROCHLORIDE

REACTIONS (1)
  - Drug ineffective [None]

NARRATIVE: CASE EVENT DATE: 20160114
